FAERS Safety Report 9055414 (Version 1)
Quarter: 2013Q1

REPORT INFORMATION
  Report Type: Spontaneous
  Country: US (occurrence: US)
  Receive Date: 20130206
  Receipt Date: 20130206
  Transmission Date: 20140127
  Serious: No
  Sender: FDA-Public Use
  Company Number: US-ASTRAZENECA-2013SE07469

PATIENT
  Age: 71 Year
  Sex: Female

DRUGS (3)
  1. NEXIUM [Suspect]
     Indication: BARRETT^S OESOPHAGUS
     Dosage: 2 OR 3 CAPSULES A DAY
     Route: 048
  2. NEXIUM [Suspect]
     Indication: BARRETT^S OESOPHAGUS
     Dosage: GENERIC
     Route: 048
  3. PRILOSEC [Suspect]
     Indication: BARRETT^S OESOPHAGUS
     Route: 048

REACTIONS (3)
  - Pain [Unknown]
  - Intentional drug misuse [Unknown]
  - Off label use [Unknown]
